FAERS Safety Report 16354634 (Version 12)
Quarter: 2020Q2

REPORT INFORMATION
  Report Type: Report from Study
  Country: US (occurrence: US)
  Receive Date: 20190524
  Receipt Date: 20200414
  Transmission Date: 20200713
  Serious: Yes (Disabling, Other)
  Sender: FDA-Public Use
  Company Number: US-MALLINCKRODT-T201903709

PATIENT
  Sex: Male
  Weight: 141 kg

DRUGS (8)
  1. REPOSITORY CORTICOTROPIN INJECTION [Suspect]
     Active Substance: CORTICOTROPIN
     Dosage: 40 UNITS / .5 ML, 2 TIMES PER WEEK
     Route: 058
     Dates: start: 20190611, end: 201906
  2. REPOSITORY CORTICOTROPIN INJECTION [Suspect]
     Active Substance: CORTICOTROPIN
     Dosage: 40 UNITS / .5 ML, EVERY OTHER DAY (INSTEAD OF 4 TIMES PER WEEK)
     Route: 058
     Dates: start: 201906, end: 201907
  3. REPOSITORY CORTICOTROPIN INJECTION [Suspect]
     Active Substance: CORTICOTROPIN
     Dosage: 40 UNITS/0.5 ML, 4 TIMES WEEKLY
     Route: 058
     Dates: start: 2019
  4. REPOSITORY CORTICOTROPIN INJECTION [Suspect]
     Active Substance: CORTICOTROPIN
     Dosage: 40 UNITS/0.5 ML, 4 TIMES WEEKLY (MONDAY, TUESDAY, THURSDAY, FRIDAY)
     Route: 058
  5. CYCLOSPORINE. [Concomitant]
     Active Substance: CYCLOSPORINE
     Indication: PRODUCT USED FOR UNKNOWN INDICATION
     Dosage: UNK
     Route: 065
  6. REPOSITORY CORTICOTROPIN INJECTION [Suspect]
     Active Substance: CORTICOTROPIN
     Indication: NEPHROTIC SYNDROME
     Dosage: 40 UNITS/0.5 ML, 4 TIMES WEEKLY
     Route: 065
  7. REPOSITORY CORTICOTROPIN INJECTION [Suspect]
     Active Substance: CORTICOTROPIN
     Dosage: 40 UNITS/0.5 ML, 4 TIMES WEEKLY
     Route: 058
     Dates: start: 201907
  8. REPOSITORY CORTICOTROPIN INJECTION [Suspect]
     Active Substance: CORTICOTROPIN
     Indication: GLOMERULONEPHRITIS MEMBRANOUS
     Dosage: 40 UNITS/0.5 ML, TWICE WEEKLY
     Route: 065

REACTIONS (19)
  - Insomnia [Not Recovered/Not Resolved]
  - Injection site pain [Not Recovered/Not Resolved]
  - Headache [Not Recovered/Not Resolved]
  - Stress [Not Recovered/Not Resolved]
  - Diabetes mellitus [Recovering/Resolving]
  - Gait disturbance [Not Recovered/Not Resolved]
  - Rhinorrhoea [Recovering/Resolving]
  - Muscular weakness [Not Recovered/Not Resolved]
  - Injection site bruising [Not Recovered/Not Resolved]
  - Immunosuppression [Not Recovered/Not Resolved]
  - Fear of injection [Recovering/Resolving]
  - Malaise [Not Recovered/Not Resolved]
  - Swelling [Not Recovered/Not Resolved]
  - Peripheral swelling [Not Recovered/Not Resolved]
  - Tongue disorder [Not Recovered/Not Resolved]
  - Acne [Not Recovered/Not Resolved]
  - Disability [Unknown]
  - Visual impairment [Unknown]
  - Drug ineffective [Not Recovered/Not Resolved]

NARRATIVE: CASE EVENT DATE: 2019
